FAERS Safety Report 9153598 (Version 1)
Quarter: 2013Q1

REPORT INFORMATION
  Report Type: Spontaneous
  Country: CN (occurrence: None)
  Receive Date: 20130204
  Receipt Date: 20130204
  Transmission Date: 20140127
  Serious: Yes (Hospitalization)
  Sender: FDA-Public Use
  Company Number: DSA_62209_2013

PATIENT
  Age: 46 Year
  Sex: Male

DRUGS (27)
  1. FLUOROURACIL [Suspect]
     Indication: COLORECTAL CANCER METASTATIC
     Dosage: (400 MG/M2;EVERY OTHER WEEK INTRAVENOUS BOLUS)
     Route: 040
     Dates: start: 20120927, end: 20120927
  2. BLINDED THERAPY [Suspect]
     Indication: COLORECTAL CANCER METASTATIC
     Dosage: (4 MG/KG;EVERY OTHER WEEK INTRAVENOUS (NOT OTHERWISE SPECIFIED))
     Route: 042
     Dates: start: 20120927, end: 20120927
  3. IRINOTECAN (IRINOTECAN) [Suspect]
     Indication: COLORECTAL CANCER METASTATIC
     Dosage: ( 180 MG/M2;EVERY OTHER WEEK INTRAVENOUS (NOT OTHERWISE SPECIFIED))
     Route: 042
     Dates: start: 20120927, end: 20120927
  4. LEUCOVORIN (LEUCOVORIN-FOLINIC ACID) [Suspect]
     Indication: COLORECTAL CANCER METASTATIC
     Dosage: ( 400 MG/M2;EVERY OTHER WEEK INTRAVENOUS (NOT OTHERWISE SPECIFIED))
     Route: 042
     Dates: start: 20120927, end: 20120927
  5. GLUTATHIONE [Concomitant]
  6. SUCCINIC ACID [Concomitant]
  7. LEUCOGEN [Concomitant]
  8. HEPARIN-FRACTION, SODIUM SALT [Concomitant]
  9. HUMAN GROWTH HORMONE, RECOMBINANT [Concomitant]
  10. INVERT SUGAR [Concomitant]
  11. ASPARTATE POTASSIUM/MAGNESIUM ASPARTATE [Concomitant]
  12. MULTIVITAMINS [Concomitant]
  13. ATROPINE [Concomitant]
  14. G-CSF [Concomitant]
  15. ACETAMINOPHEN W/OXYCODONE [Concomitant]
  16. POTASSIUM CHLORIDE [Concomitant]
  17. LYSINE ASPIRIN [Concomitant]
  18. DEXAMETHASONE [Concomitant]
  19. MOSAPRIDE CITRATE [Concomitant]
  20. THROMBIN [Concomitant]
  21. POTASSIUM CHLORIDE [Concomitant]
  22. HYOSCYAMINE [Concomitant]
  23. DEXAMETHASONE SODIUM PHOSPHATE [Concomitant]
  24. GLYCYRRHIZIC ACID [Concomitant]
  25. LANSOPRAZOLE [Concomitant]
  26. GRANISETRON [Concomitant]
  27. LEVOFLOXACIN [Concomitant]

REACTIONS (1)
  - Intestinal obstruction [None]
